FAERS Safety Report 14374711 (Version 1)
Quarter: 2018Q1

REPORT INFORMATION
  Report Type: Spontaneous
  Country: US (occurrence: US)
  Receive Date: 20180111
  Receipt Date: 20180111
  Transmission Date: 20180509
  Serious: Yes (Other)
  Sender: FDA-Public Use
  Company Number: US-AXELLIA-001296

PATIENT
  Age: 86 Year
  Sex: Female

DRUGS (3)
  1. CEFTAZIDIME/CEFTAZIDIME PENTAHYDRATE [Concomitant]
     Indication: ENDOPHTHALMITIS
     Dosage: 2.25 MG/0.1 ML
  2. VANCOMYCIN [Suspect]
     Active Substance: VANCOMYCIN
     Indication: ENDOPHTHALMITIS
     Dosage: 1 MG/0.1 ML
  3. DEXAMETHASONE. [Concomitant]
     Active Substance: DEXAMETHASONE
     Indication: ENDOPHTHALMITIS
     Dosage: 400 UG/0.1 ML

REACTIONS (2)
  - Product use issue [Unknown]
  - Drug resistance [Unknown]
